FAERS Safety Report 6675724-6 (Version None)
Quarter: 2010Q2

REPORT INFORMATION
  Report Type: 
  Country: None (occurrence: None)
  Receive Date: 20100409
  Receipt Date: 20100401
  Transmission Date: 20101027
  Serious: Yes (Hospitalization)
  Sender: FDA-Public Use
  Company Number: DE-ABBOTT-10P-062-0636003-00

PATIENT
  Age: 65 Year
  Sex: Female
  Weight: 90 kg

DRUGS (8)
  1. ZEMPLAR [Suspect]
     Indication: SECONDARY HYPERTHYROIDISM
     Route: 042
     Dates: start: 20080627
  2. ZEMPLAR [Suspect]
     Dates: start: 20080808, end: 20081226
  3. ZEMPLAR [Suspect]
     Route: 042
  4. ALPHACALCIDOL [Concomitant]
     Indication: DRUG USE FOR UNKNOWN INDICATION
     Dosage: 3 X 2MG
  5. RENACET [Concomitant]
     Indication: DRUG USE FOR UNKNOWN INDICATION
     Dosage: 475 MG, 3 TIMES 2 TABLETS PER WEEK
  6. RENAGEL [Concomitant]
     Indication: DRUG USE FOR UNKNOWN INDICATION
     Dosage: 800 MG,4 TIMES 1 TABLET PER WEEK
  7. ERYTHROPOETIN [Concomitant]
     Indication: DRUG USE FOR UNKNOWN INDICATION
     Dosage: 9000 IE PER WEEK
  8. ERYTHROPOETIN [Concomitant]
     Dosage: 3000 IE
     Dates: start: 20080808, end: 20080825

REACTIONS (1)
  - CARDIAC PACEMAKER INSERTION [None]
